FAERS Safety Report 7331792-X (Version None)
Quarter: 2011Q1

REPORT INFORMATION
  Report Type: 
  Country: None (occurrence: None)
  Receive Date: 20110304
  Receipt Date: 20091009
  Transmission Date: 20110831
  Serious: No
  Sender: FDA-Public Use
  Company Number: US-PFIZER INC-2009265184

PATIENT
  Sex: Female
  Weight: 97.506 kg

DRUGS (3)
  1. ZANTAC [Concomitant]
     Dosage: UNK
  2. METOPROLOL [Concomitant]
     Indication: HYPERTENSION
     Dosage: UNK
  3. DILANTIN [Suspect]
     Indication: PROPHYLAXIS
     Dosage: 200 MG, 2X/DAY
     Route: 048
     Dates: start: 20090826, end: 20090831

REACTIONS (2)
  - HYPERSENSITIVITY [None]
  - RASH PRURITIC [None]
